FAERS Safety Report 9678488 (Version 2)
Quarter: 2013Q4

REPORT INFORMATION
  Report Type: Spontaneous
  Country: CA (occurrence: CA)
  Receive Date: 20131108
  Receipt Date: 20131127
  Transmission Date: 20140711
  Serious: Yes (Hospitalization, Other)
  Sender: FDA-Public Use
  Company Number: CA-B.I. PHARMACEUTICALS,INC./RIDGEFIELD-2013-BI-35803CN

PATIENT
  Age: 42 Year
  Sex: Male

DRUGS (4)
  1. PRADAXA [Suspect]
     Indication: ATRIAL FIBRILLATION
     Dosage: 300 MG
     Dates: start: 20130822
  2. COVERSYL [Concomitant]
  3. CRESTOR [Concomitant]
  4. DILTIAZEM [Concomitant]

REACTIONS (4)
  - Embolic stroke [Not Recovered/Not Resolved]
  - Deep vein thrombosis [Recovered/Resolved]
  - Surgery [Recovered/Resolved]
  - Gastrooesophageal reflux disease [Recovered/Resolved]
